FAERS Safety Report 4775036-1 (Version None)
Quarter: 2005Q3

REPORT INFORMATION
  Report Type: 
  Country: None (occurrence: None)
  Receive Date: 20050920
  Receipt Date: 20050909
  Transmission Date: 20060218
  Serious: Yes (Hospitalization, Disabling)
  Sender: FDA-Public Use
  Company Number: 2005123666

PATIENT
  Age: 62 Year
  Sex: Male

DRUGS (2)
  1. NORVASC [Suspect]
     Indication: HYPERTENSION
     Dosage: 5 MG (5 MG, 1 IN 1 D), ORAL
     Route: 048
     Dates: start: 20050712, end: 20050712
  2. DIOVANE (VALSARTAN) [Suspect]
     Indication: HYPERTENSION
     Dosage: 80 MG, ORAL
     Route: 048
     Dates: start: 20050613, end: 20050712

REACTIONS (2)
  - BLOOD PRESSURE INADEQUATELY CONTROLLED [None]
  - CEREBRAL INFARCTION [None]
